FAERS Safety Report 23034666 (Version 1)
Quarter: 2023Q4

REPORT INFORMATION
  Report Type: Spontaneous
  Country: TR (occurrence: TR)
  Receive Date: 20231005
  Receipt Date: 20231005
  Transmission Date: 20240110
  Serious: Yes (Congenital Anomaly, Other)
  Sender: FDA-Public Use
  Company Number: TR-GLAXOSMITHKLINE-TR2023GSK135557

PATIENT

DRUGS (4)
  1. LAMOTRIGINE [Suspect]
     Active Substance: LAMOTRIGINE
     Indication: Bipolar disorder
     Dosage: 50 MG, QD
     Route: 064
  2. DIVALPROEX SODIUM [Suspect]
     Active Substance: DIVALPROEX SODIUM
     Indication: Bipolar disorder
     Dosage: 1000 MG, QD
     Route: 064
  3. CLOZAPINE [Suspect]
     Active Substance: CLOZAPINE
     Indication: Bipolar disorder
     Dosage: 100 MG, QD
     Route: 064
  4. FOLATE SODIUM [Suspect]
     Active Substance: FOLATE SODIUM
     Indication: Bipolar disorder
     Dosage: UNK
     Route: 064

REACTIONS (5)
  - Brachydactyly [Unknown]
  - Cleft palate [Unknown]
  - Multiple congenital abnormalities [Unknown]
  - Aplasia [Unknown]
  - Foetal exposure during pregnancy [Unknown]
